FAERS Safety Report 9237604 (Version 1)
Quarter: 2013Q2

REPORT INFORMATION
  Report Type: Spontaneous
  Country: JP (occurrence: JP)
  Receive Date: 20130418
  Receipt Date: 20130418
  Transmission Date: 20140414
  Serious: Yes (Hospitalization)
  Sender: FDA-Public Use
  Company Number: JP-PFIZER INC-2013116323

PATIENT
  Age: 17 Year
  Sex: Female

DRUGS (7)
  1. AMOXAN [Suspect]
     Indication: DEPRESSION
     Dosage: 25 MG, 3X/DAY
     Route: 048
     Dates: start: 20130129
  2. SOLANAX [Suspect]
     Indication: DEPRESSION
     Dosage: 0.4 MG, 2X/DAY
     Route: 048
     Dates: start: 20130129
  3. JZOLOFT [Suspect]
     Indication: DEPRESSION
     Dosage: UNK
     Route: 048
  4. LEXAPRO [Concomitant]
     Dosage: 20 MG, DAILY
     Route: 048
     Dates: start: 20130129
  5. ERIMIN [Concomitant]
     Dosage: 5 MG, DAILY
     Route: 048
  6. LEXOTAN [Concomitant]
     Dosage: 6MG, DAILY
     Route: 048
  7. RIZE [Concomitant]
     Dosage: 5 MG, AS NEEDED
     Route: 048

REACTIONS (1)
  - Suicide attempt [Unknown]
